FAERS Safety Report 25393875 (Version 1)
Quarter: 2025Q2

REPORT INFORMATION
  Report Type: Spontaneous
  Country: US (occurrence: None)
  Receive Date: 20250604
  Receipt Date: 20250604
  Transmission Date: 20250716
  Serious: No
  Sender: Valinor Pharma
  Company Number: US-ARIS GLOBAL-VLR202409-000111

PATIENT
  Sex: Female

DRUGS (4)
  1. MOVANTIK [Suspect]
     Active Substance: NALOXEGOL OXALATE
     Indication: Product used for unknown indication
     Route: 048
     Dates: start: 20240917
  2. MOVANTIK [Suspect]
     Active Substance: NALOXEGOL OXALATE
     Dosage: TAKES AT LEAST 2 HOURS BEFORE EATING ANYTHING IN THE MORNING ALONG WITH A GLASS OF WATER
     Route: 048
     Dates: start: 2024, end: 20240916
  3. MOVANTIK [Suspect]
     Active Substance: NALOXEGOL OXALATE
     Route: 048
     Dates: start: 202403, end: 2024
  4. MIRALAX [Concomitant]
     Active Substance: POLYETHYLENE GLYCOL 3350
     Indication: Laxative supportive care
     Route: 065

REACTIONS (4)
  - Abdominal pain upper [Recovered/Resolved]
  - Diarrhoea [Recovered/Resolved]
  - Therapeutic product effect variable [Unknown]
  - Intentional product misuse [Unknown]

NARRATIVE: CASE EVENT DATE: 20240101
